FAERS Safety Report 25358446 (Version 2)
Quarter: 2025Q3

REPORT INFORMATION
  Report Type: Spontaneous
  Country: US (occurrence: US)
  Receive Date: 20250526
  Receipt Date: 20250711
  Transmission Date: 20251021
  Serious: No
  Sender: NOVARTIS
  Company Number: US-002147023-NVSC2025US081221

PATIENT
  Age: 36 Year
  Sex: Female

DRUGS (14)
  1. SECUKINUMAB [Suspect]
     Active Substance: SECUKINUMAB
     Indication: Hidradenitis
     Route: 065
  2. DOXYCYCLINE [Suspect]
     Active Substance: DOXYCYCLINE
     Indication: Hidradenitis
     Dosage: 100 MG, BID
     Route: 065
  3. ADALIMUMAB [Suspect]
     Active Substance: ADALIMUMAB
     Indication: Hidradenitis
     Dosage: UNK, QW (40)
     Route: 065
     Dates: start: 20161201, end: 20190205
  4. METHOTREXATE [Suspect]
     Active Substance: METHOTREXATE
     Indication: Hidradenitis
     Dosage: UNK, QW (15)
     Route: 065
     Dates: start: 20170613, end: 20191001
  5. CLINDAMYCIN [Suspect]
     Active Substance: CLINDAMYCIN
     Indication: Hidradenitis
     Route: 065
  6. INFLIXIMAB [Suspect]
     Active Substance: INFLIXIMAB
     Indication: Hidradenitis
     Dosage: 10 MG/KG, Q4W
     Route: 065
  7. TOFACITINIB [Suspect]
     Active Substance: TOFACITINIB
     Indication: Hidradenitis
     Dosage: UNK, (11) QD
     Route: 065
     Dates: start: 20200901, end: 20201101
  8. BIMEKIZUMAB [Suspect]
     Active Substance: BIMEKIZUMAB
     Indication: Hidradenitis
     Dosage: 320 MG, Q4W
     Route: 065
  9. PREDNISONE [Suspect]
     Active Substance: PREDNISONE
     Indication: Hidradenitis
     Dosage: 5 MG, QD
     Route: 065
     Dates: start: 20240101
  10. USTEKINUMAB [Suspect]
     Active Substance: USTEKINUMAB
     Indication: Hidradenitis
     Route: 065
     Dates: start: 20200301, end: 20201001
  11. SILIQ [Suspect]
     Active Substance: BRODALUMAB
     Indication: Hidradenitis
     Route: 065
     Dates: start: 20200601, end: 20201001
  12. SILIQ [Suspect]
     Active Substance: BRODALUMAB
     Route: 065
  13. CERTOLIZUMAB PEGOL [Suspect]
     Active Substance: CERTOLIZUMAB PEGOL
     Indication: Hidradenitis
     Route: 065
     Dates: start: 20201101, end: 20210901
  14. RIFAMPIN [Suspect]
     Active Substance: RIFAMPIN
     Indication: Hidradenitis
     Route: 065

REACTIONS (5)
  - Drug ineffective [Unknown]
  - General physical health deterioration [Unknown]
  - Pain [Unknown]
  - Hidradenitis [Unknown]
  - Condition aggravated [Unknown]
